FAERS Safety Report 10318393 (Version 2)
Quarter: 2014Q3

REPORT INFORMATION
  Report Type: Other
  Country: US (occurrence: US)
  Receive Date: 20140719
  Receipt Date: 20140719
  Transmission Date: 20150326
  Serious: Yes (Hospitalization, Other)
  Sender: FDA-Public Use
  Company Number: US-GSKPPD-2014GSK000957

PATIENT
  Age: 55 Year
  Sex: Male
  Weight: 138.92 kg

DRUGS (11)
  1. LASIX [Concomitant]
     Active Substance: FUROSEMIDE
  2. ZAROXOLYN [Concomitant]
     Active Substance: METOLAZONE
  3. ZETIA [Concomitant]
     Active Substance: EZETIMIBE
  4. AVANDIA [Suspect]
     Active Substance: ROSIGLITAZONE MALEATE
     Indication: DIABETES MELLITUS
     Route: 048
     Dates: start: 2002, end: 2003
  5. POTASSIUM [Concomitant]
     Active Substance: POTASSIUM
  6. LANOXIN [Concomitant]
     Active Substance: DIGOXIN
  7. COUMADIN [Concomitant]
     Active Substance: WARFARIN SODIUM
  8. TOPROL XL [Concomitant]
     Active Substance: METOPROLOL SUCCINATE
  9. LIPITOR [Concomitant]
     Active Substance: ATORVASTATIN CALCIUM
  10. ALTACE [Concomitant]
     Active Substance: RAMIPRIL
  11. DEMADEX [Concomitant]
     Active Substance: TORSEMIDE

REACTIONS (1)
  - Cardiac failure congestive [Recovered/Resolved]

NARRATIVE: CASE EVENT DATE: 20030218
